FAERS Safety Report 7638308-9 (Version None)
Quarter: 2011Q3

REPORT INFORMATION
  Report Type: 
  Country: None (occurrence: None)
  Receive Date: 20110727
  Receipt Date: 20110727
  Transmission Date: 20111222
  Serious: Yes (Hospitalization, Other)
  Sender: FDA-Public Use
  Company Number: None

PATIENT
  Age: 33 Year
  Sex: Female
  Weight: 67.131 kg

DRUGS (1)
  1. AVELOX [Suspect]
     Indication: SINUSITIS
     Dosage: 500MG
     Route: 048
     Dates: start: 20050831, end: 20050910

REACTIONS (18)
  - ASTHENIA [None]
  - NAUSEA [None]
  - TREMOR [None]
  - DYSPNOEA [None]
  - TENDON PAIN [None]
  - WEIGHT DECREASED [None]
  - PAIN [None]
  - ABDOMINAL PAIN [None]
  - LIGAMENT PAIN [None]
  - DIZZINESS [None]
  - PALPITATIONS [None]
  - VOMITING [None]
  - HEADACHE [None]
  - MYALGIA [None]
  - HYPERHIDROSIS [None]
  - VISION BLURRED [None]
  - ALOPECIA [None]
  - TACHYCARDIA [None]
